FAERS Safety Report 21869028 (Version 1)
Quarter: 2023Q1

REPORT INFORMATION
  Report Type: Spontaneous
  Country: CN (occurrence: CN)
  Receive Date: 20230117
  Receipt Date: 20230117
  Transmission Date: 20230418
  Serious: Yes (Other)
  Sender: FDA-Public Use
  Company Number: CN-JNJFOC-20230130412

PATIENT
  Age: 14 Year
  Sex: Female
  Weight: 48 kg

DRUGS (3)
  1. CETIRIZINE HYDROCHLORIDE [Suspect]
     Active Substance: CETIRIZINE HYDROCHLORIDE
     Indication: Upper respiratory tract infection
     Dosage: 10.000 MILLIGRAM, ONCE DAILY (QD)
     Route: 048
     Dates: start: 20220228, end: 20220301
  2. OSELTAMIVIR PHOSPHATE [Suspect]
     Active Substance: OSELTAMIVIR PHOSPHATE
     Indication: Influenza
     Dosage: 75.000 MILLIGRAM, 2X/DAY (BID)
     Route: 048
     Dates: start: 20220228, end: 20220301
  3. GUAIFENESIN, METHYLEPHEDRINE AND CHLORPHENAMINE [Concomitant]
     Indication: Product used for unknown indication
     Route: 065

REACTIONS (2)
  - Syncope [Recovered/Resolved]
  - Product use in unapproved indication [Unknown]

NARRATIVE: CASE EVENT DATE: 20220301
